FAERS Safety Report 10163859 (Version 1)
Quarter: 2014Q2

REPORT INFORMATION
  Report Type: Spontaneous
  Country: GB (occurrence: GB)
  Receive Date: 20140509
  Receipt Date: 20140509
  Transmission Date: 20141212
  Serious: Yes (Hospitalization)
  Sender: FDA-Public Use
  Company Number: PHHY2014GB055326

PATIENT
  Age: 30 Year
  Sex: Female
  Weight: 65 kg

DRUGS (1)
  1. METRONIDAZOLE [Suspect]
     Indication: HELICOBACTER INFECTION
     Dosage: 1 DF TID
     Route: 048
     Dates: start: 20130804, end: 20130811

REACTIONS (27)
  - Joint crepitation [Not Recovered/Not Resolved]
  - Muscle enzyme increased [Recovered/Resolved with Sequelae]
  - Muscle twitching [Recovered/Resolved with Sequelae]
  - Muscle spasms [Recovering/Resolving]
  - Muscular weakness [Recovered/Resolved with Sequelae]
  - Hepatic pain [Recovered/Resolved]
  - Palpitations [Not Recovered/Not Resolved]
  - Asthenia [Not Recovered/Not Resolved]
  - Psychotic disorder [Recovering/Resolving]
  - Vision blurred [Recovered/Resolved]
  - Ocular hyperaemia [Recovered/Resolved]
  - Suicidal ideation [Recovered/Resolved]
  - Hypoaesthesia oral [Not Recovered/Not Resolved]
  - Conversion disorder [Recovered/Resolved]
  - Facial spasm [Not Recovered/Not Resolved]
  - Insomnia [Recovered/Resolved with Sequelae]
  - Neck pain [Not Recovered/Not Resolved]
  - Restlessness [Recovered/Resolved with Sequelae]
  - Restless legs syndrome [Not Recovered/Not Resolved]
  - Fear of death [Recovered/Resolved]
  - Liver function test abnormal [Not Recovered/Not Resolved]
  - Arthralgia [Not Recovered/Not Resolved]
  - Dizziness [Recovered/Resolved with Sequelae]
  - Nausea [Recovered/Resolved with Sequelae]
  - Chromaturia [Not Recovered/Not Resolved]
  - Confusional state [Recovered/Resolved with Sequelae]
  - Headache [Recovered/Resolved]
